FAERS Safety Report 7535018-3 (Version None)
Quarter: 2011Q2

REPORT INFORMATION
  Report Type: 
  Country: None (occurrence: None)
  Receive Date: 20110609
  Receipt Date: 20110531
  Transmission Date: 20111010
  Serious: No
  Sender: FDA-Public Use
  Company Number: US-BIOGENIDEC-2011BI014856

PATIENT
  Age: 17 Year
  Sex: Female

DRUGS (2)
  1. CLARITIN [Concomitant]
     Indication: PREMEDICATION
  2. TYSABRI [Suspect]
     Indication: MULTIPLE SCLEROSIS
     Route: 042
     Dates: start: 20110210, end: 20110505

REACTIONS (5)
  - THROAT TIGHTNESS [None]
  - HYPOAESTHESIA FACIAL [None]
  - DYSPNOEA [None]
  - PARAESTHESIA [None]
  - FLUSHING [None]
